FAERS Safety Report 5174269-2 (Version None)
Quarter: 2006Q4

REPORT INFORMATION
  Report Type: 
  Country: None (occurrence: None)
  Receive Date: 20061214
  Receipt Date: 20061207
  Transmission Date: 20070319
  Serious: Yes (Other)
  Sender: FDA-Public Use
  Company Number: SE-JNJFOC-20061202701

PATIENT
  Age: 48 Year
  Sex: Male

DRUGS (12)
  1. RISPERDAL [Suspect]
     Indication: SCHIZOPHRENIA
     Route: 065
  2. HALDOL [Suspect]
     Indication: SCHIZOPHRENIA
     Route: 048
  3. SEROQUEL [Suspect]
     Indication: SCHIZOPHRENIA
     Route: 048
  4. HIBERNAL [Suspect]
     Indication: SCHIZOPHRENIA
     Route: 048
  5. TRILAFON [Suspect]
     Indication: SCHIZOPHRENIA
     Route: 048
  6. NOZINAN [Suspect]
     Indication: SCHIZOPHRENIA
     Route: 048
  7. MALLOROL [Suspect]
     Indication: SCHIZOPHRENIA
     Route: 048
  8. TERFLUZIN [Suspect]
     Indication: SCHIZOPHRENIA
     Route: 048
  9. CISORDINOL [Suspect]
     Indication: SCHIZOPHRENIA
     Route: 048
  10. LEPONEX [Suspect]
     Indication: SCHIZOPHRENIA
     Route: 048
  11. ROXIAM [Suspect]
     Indication: SCHIZOPHRENIA
     Route: 048
  12. ZYPREXA [Suspect]
     Indication: SCHIZOPHRENIA
     Route: 048

REACTIONS (1)
  - RETINOPATHY [None]
